FAERS Safety Report 6811056-0 (Version None)
Quarter: 2010Q2

REPORT INFORMATION
  Report Type: 
  Country: None (occurrence: None)
  Receive Date: 20100630
  Receipt Date: 20090122
  Transmission Date: 20101027
  Serious: No
  Sender: FDA-Public Use
  Company Number: US-PFIZER INC-2009160886

PATIENT
  Sex: Male

DRUGS (3)
  1. NICOTROL [Suspect]
     Dosage: UNK
     Dates: start: 20060101
  2. XANAX [Concomitant]
  3. LIPITOR [Concomitant]

REACTIONS (1)
  - DRUG INEFFECTIVE [None]
